FAERS Safety Report 4703114-1 (Version None)
Quarter: 2005Q2

REPORT INFORMATION
  Report Type: 
  Country: None (occurrence: None)
  Receive Date: 20050629
  Receipt Date: 20050610
  Transmission Date: 20051028
  Serious: Yes (Hospitalization, Other)
  Sender: FDA-Public Use
  Company Number: US-GLAXOSMITHKLINE-A0562126A

PATIENT
  Age: 25 Year
  Sex: Female
  Weight: 63 kg

DRUGS (2)
  1. LAMICTAL [Suspect]
     Indication: BIPOLAR DISORDER
     Route: 048
     Dates: end: 20050604
  2. NO CONCURRENT MEDICATION [Concomitant]

REACTIONS (30)
  - ALANINE AMINOTRANSFERASE INCREASED [None]
  - BLOOD BILIRUBIN INCREASED [None]
  - CHILLS [None]
  - CONJUNCTIVITIS INFECTIVE [None]
  - DYSURIA [None]
  - ERYTHEMA [None]
  - ERYTHEMA MULTIFORME [None]
  - EYE DISCHARGE [None]
  - HEPATIC ENZYME INCREASED [None]
  - HERPES SIMPLEX SEROLOGY POSITIVE [None]
  - LETHARGY [None]
  - LIP EXFOLIATION [None]
  - LYMPHADENOPATHY [None]
  - MOUTH ULCERATION [None]
  - OCULAR HYPERAEMIA [None]
  - ODYNOPHAGIA [None]
  - ORAL MUCOSAL EXFOLIATION [None]
  - PAIN [None]
  - PHARYNGEAL ERYTHEMA [None]
  - PHARYNGOLARYNGEAL PAIN [None]
  - PYREXIA [None]
  - RASH [None]
  - RASH ERYTHEMATOUS [None]
  - RASH MACULAR [None]
  - RASH PRURITIC [None]
  - SKIN EXFOLIATION [None]
  - STEVENS-JOHNSON SYNDROME [None]
  - THROAT IRRITATION [None]
  - TONGUE COATED [None]
  - VISION BLURRED [None]
